FAERS Safety Report 11104843 (Version 2)
Quarter: 2015Q3

REPORT INFORMATION
  Report Type: Report from Study
  Country: DE (occurrence: DE)
  Receive Date: 20150511
  Receipt Date: 20150922
  Transmission Date: 20151125
  Serious: Yes (Death, Hospitalization)
  Sender: FDA-Public Use
  Company Number: PHHY2014DE132227

PATIENT
  Sex: Male
  Weight: 63.3 kg

DRUGS (1)
  1. EXJADE [Suspect]
     Active Substance: DEFERASIROX
     Indication: MYELODYSPLASTIC SYNDROME
     Dosage: 500 MG, (2X500 MG) BID
     Route: 065
     Dates: start: 20140130

REACTIONS (4)
  - Cardiac disorder [Fatal]
  - Dyspnoea exertional [Recovered/Resolved]
  - Atrial flutter [Recovered/Resolved]
  - Tachycardia [Recovered/Resolved]

NARRATIVE: CASE EVENT DATE: 20141006
